FAERS Safety Report 4279376-4 (Version None)
Quarter: 2004Q1

REPORT INFORMATION
  Report Type: 
  Country: None (occurrence: None)
  Receive Date: 20040127
  Receipt Date: 20040120
  Transmission Date: 20041129
  Serious: Yes (Hospitalization)
  Sender: FDA-Public Use
  Company Number: WAES 0401USA01462

PATIENT
  Sex: Male

DRUGS (2)
  1. PRINIVIL [Suspect]
     Route: 048
     Dates: start: 20000101
  2. LISINOPRIL [Suspect]

REACTIONS (3)
  - PHARMACEUTICAL PRODUCT COMPLAINT [None]
  - POLYNEUROPATHY [None]
  - SPINAL OPERATION [None]
